FAERS Safety Report 5173260-X (Version None)
Quarter: 2006Q4

REPORT INFORMATION
  Report Type: 
  Country: None (occurrence: None)
  Receive Date: 20061206
  Receipt Date: 20061129
  Transmission Date: 20070319
  Serious: Yes (Other)
  Sender: FDA-Public Use
  Company Number: 2006AP000937

PATIENT
  Age: 74 Year
  Sex: Female

DRUGS (4)
  1. CEFUROXIME AXETIL [Suspect]
     Indication: LOCALISED INFECTION
     Dosage: 500 MG;PO
     Route: 048
     Dates: start: 20061003, end: 20061024
  2. ACYCLOVIR [Suspect]
     Dosage: BID;PO
     Route: 048
     Dates: start: 20061006, end: 20061007
  3. DEXAMETHASONE [Concomitant]
  4. CYTOXAN [Concomitant]

REACTIONS (6)
  - BLINDNESS [None]
  - DIARRHOEA [None]
  - LOSS OF CONSCIOUSNESS [None]
  - MUSCULAR WEAKNESS [None]
  - SYNCOPE [None]
  - VISION BLURRED [None]
